FAERS Safety Report 18198969 (Version 1)
Quarter: 2020Q3

REPORT INFORMATION
  Report Type: Spontaneous
  Country: DE (occurrence: DE)
  Receive Date: 20200826
  Receipt Date: 20200826
  Transmission Date: 20201103
  Serious: Yes (Hospitalization)
  Sender: FDA-Public Use
  Company Number: DE-TEVA-2020-DE-1820144

PATIENT
  Age: 9 Year
  Sex: Male
  Weight: 28 kg

DRUGS (8)
  1. ACICLOVIR [Suspect]
     Active Substance: ACYCLOVIR
     Dosage: 3 DOSAGE FORMS ,DAILY DOSE: 3 DF DOSAGE FORM EVERY DAYS 3 SEPARATED DOSES
     Route: 042
     Dates: start: 20190902, end: 20190904
  2. PREDNIFLUID 10MG/ML AT?SUSPENSION [Concomitant]
     Indication: IRIDOCYCLITIS
     Dosage: 2 DOSAGE FORMS ,DAILY DOSE: 2 DF DOSAGE FORM EVERY DAYS 2 SEPARATED DOSES
     Dates: start: 20190913, end: 20190919
  3. BRIMONIDIN 2MG/ML [Concomitant]
     Indication: OCULAR HYPERTENSION
     Dosage: 2 DOSAGE FORMS,DAILY DOSE: 2 DF DOSAGE FORM EVERY DAYS 2 SEPARATED DOSES
     Dates: start: 20190830, end: 20190904
  4. ACICLOVIR SUSPENSION 200MG/5ML [Suspect]
     Active Substance: ACYCLOVIR
     Indication: OPHTHALMIC HERPES SIMPLEX
     Dosage: 750  MG,DAILY DOSE: 750 MG MILLGRAM(S) EVERY DAYS 3 SEPARATED DOSES
     Route: 048
     Dates: start: 20190904, end: 20190908
  5. COSOPT 20MG/ML + 5 MG/ML AT [Concomitant]
     Indication: OCULAR HYPERTENSION
     Dosage: 2 DOSAGE FORMS ,DAILY DOSE: 2 DF DOSAGE FORM EVERY DAYS 2 SEPARATED DOSES
     Route: 047
     Dates: start: 20190830, end: 20190917
  6. PREDNIFLUID 10MG/ML AT?SUSPENSION [Concomitant]
     Indication: IRIDOCYCLITIS
     Dosage: 1 DOSAGE FORMS DAILY;
     Dates: start: 20190920, end: 20190926
  7. ACICLOVIR [Suspect]
     Active Substance: ACYCLOVIR
     Indication: OPHTHALMIC HERPES SIMPLEX
     Dosage: 3 DOSAGE FORMS, DAILY DOSE: 3 DF DOSAGE FORM EVERY DAYS 3 SEPARATED DOSES
     Route: 042
     Dates: start: 20190830, end: 20190901
  8. PREDNIFLUID 10MG/ML AT?SUSPENSION [Concomitant]
     Indication: IRIDOCYCLITIS
     Dosage: 3 DOSAGE FORMS ,DAILY DOSE: 3 DF DOSAGE FORM EVERY DAYS 3 SEPARATED DOSES
     Dates: start: 20190830, end: 20190912

REACTIONS (1)
  - Blood creatinine [Not Recovered/Not Resolved]

NARRATIVE: CASE EVENT DATE: 20190901
